FAERS Safety Report 20225171 (Version 1)
Quarter: 2021Q4

REPORT INFORMATION
  Report Type: Spontaneous
  Country: US (occurrence: US)
  Receive Date: 20211223
  Receipt Date: 20211223
  Transmission Date: 20220303
  Serious: Yes (Hospitalization, Other)
  Sender: FDA-Public Use
  Company Number: US-SUN PHARMACEUTICAL INDUSTRIES LTD-2021R1-321576

PATIENT
  Age: 69 Year
  Sex: Male

DRUGS (20)
  1. CETIRIZINE [Suspect]
     Active Substance: CETIRIZINE HYDROCHLORIDE
     Indication: Systemic mastocytosis
     Dosage: 20 MILLIGRAM, BID
     Route: 065
  2. CETIRIZINE [Suspect]
     Active Substance: CETIRIZINE HYDROCHLORIDE
     Indication: Haematological malignancy
     Dosage: 20 MILLIGRAM, DAILY
     Route: 065
  3. FAMOTIDINE [Suspect]
     Active Substance: FAMOTIDINE
     Indication: Systemic mastocytosis
     Dosage: 40 MILLIGRAM, BID
     Route: 065
  4. FAMOTIDINE [Suspect]
     Active Substance: FAMOTIDINE
     Indication: Haematological malignancy
  5. RANITIDINE [Suspect]
     Active Substance: RANITIDINE
     Indication: Haematological malignancy
     Dosage: 150 MILLIGRAM, BID
     Route: 065
  6. RANITIDINE [Suspect]
     Active Substance: RANITIDINE
     Indication: Systemic mastocytosis
  7. ASPIRIN [Suspect]
     Active Substance: ASPIRIN
     Indication: Systemic mastocytosis
     Dosage: 81 MILLIGRAM, DAILY
     Route: 065
  8. ASPIRIN [Suspect]
     Active Substance: ASPIRIN
     Indication: Haematological malignancy
     Dosage: 650 MILLIGRAM, TID
     Route: 065
  9. KETOTIFEN [Suspect]
     Active Substance: KETOTIFEN
     Indication: Haematological malignancy
     Dosage: 10 MILLIGRAM, DAILY
     Route: 065
  10. KETOTIFEN [Suspect]
     Active Substance: KETOTIFEN
     Indication: Systemic mastocytosis
  11. METHYLPREDNISOLONE [Suspect]
     Active Substance: METHYLPREDNISOLONE
     Indication: Systemic mastocytosis
     Dosage: 50 MILLIGRAM (HD 22-27)
     Route: 065
  12. METHYLPREDNISOLONE [Suspect]
     Active Substance: METHYLPREDNISOLONE
     Indication: Haematological malignancy
  13. MONTELUKAST [Suspect]
     Active Substance: MONTELUKAST SODIUM
     Indication: Systemic mastocytosis
     Dosage: 10 MILLIGRAM, DAILY
     Route: 065
  14. MONTELUKAST [Suspect]
     Active Substance: MONTELUKAST SODIUM
     Indication: Haematological malignancy
     Dosage: 20 MILLIGRAM, BID
     Route: 065
  15. CROMOLYN SODIUM [Concomitant]
     Active Substance: CROMOLYN SODIUM
     Indication: Systemic mastocytosis
     Dosage: 200 MILLIGRAM, QID
     Route: 065
  16. CROMOLYN SODIUM [Concomitant]
     Active Substance: CROMOLYN SODIUM
     Indication: Haematological malignancy
  17. DIPHENHYDRAMINE [Concomitant]
     Active Substance: DIPHENHYDRAMINE
     Indication: Systemic mastocytosis
     Dosage: 50 MILLIGRAM, EVERY 4 HOURS
     Route: 065
  18. DIPHENHYDRAMINE [Concomitant]
     Active Substance: DIPHENHYDRAMINE
     Indication: Haematological malignancy
  19. OMALIZUMAB [Concomitant]
     Active Substance: OMALIZUMAB
     Indication: Systemic mastocytosis
     Dosage: 300 MILLIGRAM (HD 6)
     Route: 065
  20. OMALIZUMAB [Concomitant]
     Active Substance: OMALIZUMAB
     Indication: Haematological malignancy

REACTIONS (1)
  - Anaphylactic reaction [Recovered/Resolved]
